FAERS Safety Report 4532568-9 (Version None)
Quarter: 2004Q4

REPORT INFORMATION
  Report Type: 
  Country: None (occurrence: None)
  Receive Date: 20041206
  Receipt Date: 20040928
  Transmission Date: 20050328
  Serious: No
  Sender: FDA-Public Use
  Company Number: USA040979541

PATIENT
  Sex: Male

DRUGS (4)
  1. CYMBALTA [Suspect]
     Indication: DEPRESSION
     Dosage: 30 MG DAY
     Dates: start: 20040901
  2. TRAZADONE (TRAZODONE) [Concomitant]
  3. KLONOPIN [Concomitant]
  4. BLOOD PRESSURE MED [Concomitant]

REACTIONS (2)
  - ANXIETY [None]
  - MIDDLE INSOMNIA [None]
